FAERS Safety Report 13633223 (Version 1)
Quarter: 2017Q2

REPORT INFORMATION
  Report Type: Spontaneous
  Country: US (occurrence: US)
  Receive Date: 20170531
  Receipt Date: 20170531
  Transmission Date: 20170830
  Serious: No
  Sender: FDA-Public Use
  Company Number: US-ASTELLAS-1520219

PATIENT
  Sex: Female

DRUGS (11)
  1. TUDORZA PRESSAIR [Concomitant]
     Active Substance: ACLIDINIUM BROMIDE
  2. ALBUTEROL SULFATE. [Concomitant]
     Active Substance: ALBUTEROL SULFATE
  3. DEXAMETHASONE. [Concomitant]
     Active Substance: DEXAMETHASONE
  4. IPRATROPIUM BROMIDE. [Concomitant]
     Active Substance: IPRATROPIUM BROMIDE
  5. ZANTAC [Concomitant]
     Active Substance: RANITIDINE HYDROCHLORIDE
  6. CYCLOBENZAPRINE HCL [Concomitant]
     Active Substance: CYCLOBENZAPRINE HYDROCHLORIDE
  7. TARCEVA [Suspect]
     Active Substance: ERLOTINIB HYDROCHLORIDE
     Indication: LUNG NEOPLASM MALIGNANT
     Route: 048
     Dates: start: 20141219
  8. ZIAC (UNITED STATES) [Concomitant]
  9. ADVAIR HFA [Concomitant]
     Active Substance: FLUTICASONE PROPIONATE\SALMETEROL XINAFOATE
  10. BISOPROLOL FUMARATE. [Concomitant]
     Active Substance: BISOPROLOL FUMARATE
  11. METOCLOPRAMIDE HCL [Concomitant]
     Active Substance: METOCLOPRAMIDE HYDROCHLORIDE

REACTIONS (1)
  - Aphthous ulcer [Unknown]
